FAERS Safety Report 15347524 (Version 1)
Quarter: 2018Q3

REPORT INFORMATION
  Report Type: Report from Study
  Country: NL (occurrence: NL)
  Receive Date: 20180904
  Receipt Date: 20180904
  Transmission Date: 20181010
  Serious: Yes (Hospitalization)
  Sender: FDA-Public Use
  Company Number: NL-SA-2018SA234236

PATIENT
  Age: 66 Year
  Sex: Male
  Weight: 90 kg

DRUGS (25)
  1. MULTIVITAMIN [VITAMINS NOS] [Concomitant]
     Indication: PROPHYLAXIS
     Dosage: UNK UNK, UNK
     Route: 048
     Dates: start: 20171117
  2. PANTOPRAZOLE [Concomitant]
     Active Substance: PANTOPRAZOLE
     Indication: PROPHYLAXIS
     Dosage: UNK UNK, UNK
     Route: 048
     Dates: start: 20110201
  3. LOSARTAN. [Concomitant]
     Active Substance: LOSARTAN
     Indication: HYPERTENSION
     Dosage: UNK UNK, UNK
     Route: 048
     Dates: start: 20100518
  4. ACETYLSALICYLIC ACID [Concomitant]
     Active Substance: ASPIRIN
     Indication: BACK PAIN
     Dosage: UNK UNK, UNK
     Route: 048
     Dates: start: 20171117
  5. ACETYLSALICYLIC ACID [Concomitant]
     Active Substance: ASPIRIN
     Indication: BACK PAIN
     Dosage: 80 MG, QD
     Route: 048
     Dates: start: 20170331
  6. ETORICOXIB. [Concomitant]
     Active Substance: ETORICOXIB
     Indication: BACK PAIN
     Dosage: 60 MG, QD
     Route: 048
     Dates: start: 20180426
  7. OXYCODON [Concomitant]
     Active Substance: OXYCODONE
     Indication: URINARY TRACT INFECTION
     Dosage: 40 MG, QD
     Route: 048
     Dates: start: 20180807
  8. CABAZITAXEL [Suspect]
     Active Substance: CABAZITAXEL
     Indication: HORMONE-REFRACTORY PROSTATE CANCER
     Dosage: 56 MG, QD
     Route: 042
  9. ISOSORBIDE MONONITRATE. [Concomitant]
     Active Substance: ISOSORBIDE MONONITRATE
     Indication: CARDIAC DISORDER
     Dosage: UNK
     Dates: start: 20160122
  10. LEUPRORELINE [Concomitant]
     Active Substance: LEUPROLIDE
     Indication: PROPHYLAXIS
     Dosage: UNK UNK, UNK
     Route: 058
     Dates: start: 20160212
  11. CALCIUM CARBONATE W/COLECALCIFEROL [Concomitant]
     Active Substance: CALCIUM CARBONATE\CHOLECALCIFEROL
     Indication: PROPHYLAXIS
     Dosage: UNK UNK, UNK
     Route: 048
     Dates: start: 20180123
  12. DENOSUMAB [Concomitant]
     Active Substance: DENOSUMAB
     Indication: PROPHYLAXIS
     Dosage: UNK UNK, UNK
     Dates: start: 20180123
  13. PARACETAMOL [Concomitant]
     Active Substance: ACETAMINOPHEN
     Indication: ARTHRALGIA
     Dosage: 3000 MG, QD
     Route: 048
     Dates: start: 20160121
  14. PARACETAMOL [Concomitant]
     Active Substance: ACETAMINOPHEN
     Indication: BACK PAIN
  15. LIPEGFILGRASTIM [Concomitant]
     Active Substance: LIPEGFILGRASTIM
     Indication: PROPHYLAXIS
     Dosage: 6 MG, QD
     Route: 058
     Dates: start: 20180808, end: 20180808
  16. PREDNISONE. [Suspect]
     Active Substance: PREDNISONE
     Dosage: 10 MG, QD
     Route: 048
     Dates: start: 20180201, end: 20180201
  17. ATORVASTATIN [Concomitant]
     Active Substance: ATORVASTATIN
     Indication: PROPHYLAXIS
     Dosage: UNK UNK, UNK
     Route: 048
     Dates: start: 20150928
  18. VITAMIN D [Concomitant]
     Active Substance: CHOLECALCIFEROL
     Indication: PROPHYLAXIS
     Dosage: UNK UNK, UNK
     Route: 048
     Dates: start: 20171117
  19. NITROGLYCERINE [Concomitant]
     Active Substance: NITROGLYCERIN
     Indication: CARDIAC DISORDER
     Dosage: UNK UNK, UNK
     Route: 060
     Dates: start: 20100426
  20. OXYCODON [Concomitant]
     Active Substance: OXYCODONE
     Indication: UROSEPSIS
     Dosage: 60 MG, QD
     Route: 048
     Dates: start: 20180807
  21. METOPROLOL. [Concomitant]
     Active Substance: METOPROLOL
     Indication: HYPERTENSION
     Dosage: UNK UNK, UNK
     Route: 048
     Dates: start: 20150928
  22. PREDNISONE. [Suspect]
     Active Substance: PREDNISONE
     Indication: HORMONE-REFRACTORY PROSTATE CANCER
     Dosage: 10 MG, QD
     Route: 048
  23. CABAZITAXEL [Suspect]
     Active Substance: CABAZITAXEL
     Dosage: 25 MG/M2, Q3W
     Route: 042
     Dates: start: 20180131, end: 20180131
  24. MOVICOLON [Concomitant]
     Active Substance: POLYETHYLENE GLYCOL 3350\POTASSIUM CHLORIDE\SODIUM BICARBONATE\SODIUM CHLORIDE
     Indication: CONSTIPATION
     Dosage: UNK UNK, UNK
     Route: 048
     Dates: start: 20180420
  25. CIPROFLOXACINE [CIPROFLOXACIN] [Concomitant]
     Indication: URINARY TRACT INFECTION
     Dosage: UNK UNK, UNK
     Route: 048
     Dates: start: 20180808, end: 20180816

REACTIONS (1)
  - Urosepsis [Recovering/Resolving]

NARRATIVE: CASE EVENT DATE: 20180818
